FAERS Safety Report 8971571 (Version 1)
Quarter: 2012Q4

REPORT INFORMATION
  Report Type: 
  Country: CA (occurrence: CA)
  Receive Date: 20121217
  Receipt Date: 20121217
  Transmission Date: 20130627
  Serious: Yes (Other)
  Sender: FDA-Public Use
  Company Number: CA-B.I. PHARMACEUTICALS,INC./RIDGEFIELD-2012-CN-02575CN

PATIENT
  Age: 64 Year
  Sex: Female

DRUGS (3)
  1. PRADAX [Suspect]
     Dosage: 300 mg
     Route: 048
  2. BISOPROLOL [Concomitant]
  3. NEXIUM [Concomitant]

REACTIONS (3)
  - Eye haemorrhage [Unknown]
  - Intraocular pressure increased [Unknown]
  - Visual acuity reduced [Unknown]
